FAERS Safety Report 5553817-4 (Version None)
Quarter: 2007Q4

REPORT INFORMATION
  Report Type: 
  Country: None (occurrence: None)
  Receive Date: 20071213
  Receipt Date: 20071206
  Transmission Date: 20080405
  Serious: Yes (Hospitalization)
  Sender: FDA-Public Use
  Company Number: US-ELI_LILLY_AND_COMPANY-US200710001562

PATIENT
  Sex: Female

DRUGS (10)
  1. BYETTA [Suspect]
     Dosage: 5 UG, 2/D
     Route: 058
     Dates: start: 20061116, end: 20070301
  2. BYETTA [Suspect]
     Dosage: 10 UG, 2/D
     Route: 058
     Dates: start: 20070301
  3. LYRICA [Concomitant]
     Indication: SCIATICA
     Dosage: 50 MG, 3/D
     Route: 048
     Dates: start: 20070601
  4. METFORMIN HCL [Concomitant]
     Indication: DIABETES MELLITUS
     Dosage: 1000 MG, 2/D
     Route: 048
  5. OMEPRAZOLE [Concomitant]
     Indication: GASTROOESOPHAGEAL REFLUX DISEASE
     Dosage: 20 MG, DAILY (1/D)
     Route: 048
  6. CRESTOR [Concomitant]
     Indication: BLOOD CHOLESTEROL INCREASED
     Dosage: 20 MG, DAILY (1/D)
     Route: 048
  7. IBUPROFEN [Concomitant]
     Indication: PAIN
     Dosage: 800 MG, AS NEEDED
  8. CALCIUM MAGNESIUM /01412301/ [Concomitant]
     Dosage: 2 UNK, DAILY (1/D)
     Route: 048
  9. AVANDIA [Concomitant]
     Dosage: UNK, UNKNOWN
  10. VITAMINS [Concomitant]
     Dosage: UNK, UNKNOWN

REACTIONS (4)
  - MUSCULAR WEAKNESS [None]
  - MUSCULOSKELETAL PAIN [None]
  - OSTEOARTHRITIS [None]
  - WEIGHT DECREASED [None]
